FAERS Safety Report 18936430 (Version 5)
Quarter: 2023Q4

REPORT INFORMATION
  Report Type: Report from Study
  Country: JP (occurrence: JP)
  Receive Date: 20210225
  Receipt Date: 20231204
  Transmission Date: 20240109
  Serious: Yes (Other)
  Sender: FDA-Public Use
  Company Number: JP-ALXN-A202102222AA

PATIENT
  Age: 39 Year
  Sex: Female
  Weight: 55.2 kg

DRUGS (12)
  1. SOLIRIS [Suspect]
     Active Substance: ECULIZUMAB
     Indication: Myasthenia gravis
     Dosage: 900 MG, QW
     Route: 042
     Dates: start: 20201207, end: 20201228
  2. SOLIRIS [Suspect]
     Active Substance: ECULIZUMAB
     Dosage: 1200 MG, Q2W
     Route: 042
     Dates: start: 20210104
  3. RINDERON VG [Concomitant]
     Active Substance: BETAMETHASONE VALERATE\GENTAMICIN SULFATE
     Indication: Scar
     Dosage: 15 GRAM, TWO OR THREE TIMES.
     Route: 062
     Dates: start: 20200118, end: 20210426
  4. MIRABEGRON [Concomitant]
     Active Substance: MIRABEGRON
     Indication: Hypertonic bladder
     Dosage: 50 MILLIGRAM, QD
     Route: 048
     Dates: start: 20210118
  5. METHYLCOBALAMIN [Concomitant]
     Active Substance: METHYLCOBALAMIN
     Indication: Neuropathy peripheral
     Dosage: 500 ?G, TID
     Route: 048
     Dates: start: 20210329, end: 20210427
  6. AMOXICILLIN\CLARITHROMYCIN\VONOPRAZAN FUMURATE [Concomitant]
     Active Substance: AMOXICILLIN\CLARITHROMYCIN\VONOPRAZAN FUMURATE
     Indication: Helicobacter infection
     Dosage: UNK, BID (1 SHEET)
     Route: 048
     Dates: start: 20211028, end: 20211103
  7. MESTINON [Concomitant]
     Active Substance: PYRIDOSTIGMINE BROMIDE
     Indication: Myasthenia gravis
     Dosage: 3 DOSAGE FORM
     Route: 048
  8. TACROLIMUS [Concomitant]
     Active Substance: TACROLIMUS
     Indication: Product used for unknown indication
     Dosage: UNK
     Route: 065
  9. EFGARTIGIMOD ALFA [Concomitant]
     Active Substance: EFGARTIGIMOD ALFA
     Indication: Product used for unknown indication
     Dosage: UNK
     Route: 065
  10. PROGRAF [Concomitant]
     Active Substance: TACROLIMUS
     Indication: Myasthenia gravis
     Dosage: 3 DOSAGE FORM
     Route: 048
  11. PREDONINE [Concomitant]
     Active Substance: PREDNISOLONE
     Indication: Myasthenia gravis
     Dosage: 1 DOSAGE FORM
     Route: 048
  12. PREDONINE [Concomitant]
     Active Substance: PREDNISOLONE
     Dosage: 4 DOSAGE FORM
     Route: 048

REACTIONS (1)
  - Myasthenia gravis [Unknown]

NARRATIVE: CASE EVENT DATE: 20210212
